FAERS Safety Report 26196758 (Version 1)
Quarter: 2025Q4

REPORT INFORMATION
  Report Type: Spontaneous
  Country: EU (occurrence: EU)
  Receive Date: 20251224
  Receipt Date: 20251224
  Transmission Date: 20260118
  Serious: Yes (Death, Other)
  Sender: AUROBINDO
  Company Number: EU-AFSSAPS-PP2025001345

PATIENT
  Age: 70 Year
  Sex: Male
  Weight: 61.2 kg

DRUGS (2)
  1. BISOPROLOL FUMARATE [Suspect]
     Active Substance: BISOPROLOL FUMARATE
     Indication: Cardiac failure
     Dosage: UNK
     Route: 061
  2. FLUOROURACIL [Concomitant]
     Active Substance: FLUOROURACIL
     Indication: Oropharyngeal squamous cell carcinoma
     Dosage: 4600 MG C1J1 ON 08/04 AND C2J1 ON 09/09
     Dates: start: 20250804, end: 20250909

REACTIONS (2)
  - Arrhythmic storm [Fatal]
  - Rebound effect [Fatal]

NARRATIVE: CASE EVENT DATE: 20250930
